FAERS Safety Report 11031318 (Version 3)
Quarter: 2015Q2

REPORT INFORMATION
  Report Type: Spontaneous
  Country: US (occurrence: US)
  Receive Date: 20150415
  Receipt Date: 20150630
  Transmission Date: 20150821
  Serious: Yes (Other)
  Sender: FDA-Public Use
  Company Number: US-PFIZER INC-2015126472

PATIENT
  Age: 61 Year
  Sex: Female

DRUGS (6)
  1. CLINDAMYCIN PHOSPHATE. [Suspect]
     Active Substance: CLINDAMYCIN PHOSPHATE
     Indication: ACNE
     Dosage: UNK, 2X/DAY
     Route: 061
     Dates: start: 20150408, end: 20150408
  2. HYDROCODONE [Concomitant]
     Active Substance: HYDROCODONE
     Indication: ARTHRALGIA
     Dosage: 5/325 ^T PO OF 6^ PRN
     Route: 048
     Dates: start: 20150310
  3. VITAMIN D2 [Concomitant]
     Active Substance: ERGOCALCIFEROL
     Indication: VITAMIN D DEFICIENCY
     Dosage: 1 CAPSULE, 1 WEEKLY (ONE CAPSULE ONCE A WEEK)
     Dates: start: 20150123
  4. VITAMIN B12 [Concomitant]
     Active Substance: CYANOCOBALAMIN
     Dosage: 1 DF, 1X/DAY
     Route: 060
     Dates: start: 201501
  5. CLINDAMYCIN PHOSPHATE. [Suspect]
     Active Substance: CLINDAMYCIN PHOSPHATE
     Indication: SKIN INFECTION
     Dosage: UNK, 2X/DAY (APPLY TO AFFECTED SKIN BID)
     Route: 061
     Dates: start: 20150310, end: 20150313
  6. D3 [Concomitant]
     Active Substance: 25-HYDROXYCHOLECALCIFEROL, 5-TRANS-
     Dosage: 1 DF, 1X/DAY
     Route: 060
     Dates: start: 201501

REACTIONS (7)
  - Abdominal pain [Recovered/Resolved]
  - Dermatitis [Recovered/Resolved]
  - Infection [Recovering/Resolving]
  - Crohn^s disease [Recovered/Resolved]
  - Skin burning sensation [Recovered/Resolved]
  - Drug hypersensitivity [Unknown]
  - Erythema [Recovered/Resolved]

NARRATIVE: CASE EVENT DATE: 201503
